FAERS Safety Report 15577814 (Version 5)
Quarter: 2025Q3

REPORT INFORMATION
  Report Type: Spontaneous
  Country: CA (occurrence: CA)
  Receive Date: 20181102
  Receipt Date: 20250703
  Transmission Date: 20251021
  Serious: Yes (Hospitalization, Other)
  Sender: AUROBINDO
  Company Number: CA-AUROBINDO-AUR-APL-2018-052671

PATIENT
  Age: 65 Year
  Sex: Female

DRUGS (5)
  1. CLOPIDOGREL [Suspect]
     Active Substance: CLOPIDOGREL BISULFATE
     Indication: Antiplatelet therapy
     Route: 065
  2. TICAGRELOR [Suspect]
     Active Substance: TICAGRELOR
     Indication: Antiplatelet therapy
     Route: 065
  3. ASPIRIN [Suspect]
     Active Substance: ASPIRIN
     Indication: Antiplatelet therapy
     Route: 065
  4. HEPARIN SODIUM [Suspect]
     Active Substance: HEPARIN SODIUM
     Indication: Antiplatelet therapy
     Route: 065
  5. BRILINTA [Suspect]
     Active Substance: TICAGRELOR
     Indication: Antiplatelet therapy
     Route: 065

REACTIONS (8)
  - Haematoma [Recovered/Resolved]
  - Capillary fragility test [Recovered/Resolved]
  - Pain in extremity [Recovered/Resolved]
  - Vascular rupture [Recovered/Resolved]
  - Peripheral swelling [Recovered/Resolved]
  - Petechiae [Recovered/Resolved]
  - Capillary fragility increased [Recovered/Resolved]
  - Labelled drug-drug interaction medication error [Recovered/Resolved]
